FAERS Safety Report 10533171 (Version 2)
Quarter: 2014Q4

REPORT INFORMATION
  Report Type: Spontaneous
  Country: US (occurrence: US)
  Receive Date: 20141022
  Receipt Date: 20141022
  Transmission Date: 20150529
  Serious: Yes (Hospitalization)
  Sender: FDA-Public Use
  Company Number: US-CIPLA LTD.-2014US00986

PATIENT
  Age: 40 Year
  Sex: Female

DRUGS (2)
  1. CARBOPLATIN. [Suspect]
     Active Substance: CARBOPLATIN
     Indication: CHOROID PLEXUS CARCINOMA
     Dosage: 350 MG/M2 ON DAYS 1 AND 2
  2. ETOPOSIDE. [Suspect]
     Active Substance: ETOPOSIDE
     Indication: CHOROID PLEXUS CARCINOMA
     Dosage: 100 MG/M2 ON DAYS 1 TO 5

REACTIONS (5)
  - Sepsis [Unknown]
  - Liver disorder [Unknown]
  - Arrhythmia [Unknown]
  - Neutropenia [Unknown]
  - Bone marrow failure [Unknown]
